FAERS Safety Report 8163285-4 (Version None)
Quarter: 2012Q1

REPORT INFORMATION
  Report Type: 
  Country: None (occurrence: None)
  Receive Date: 20120224
  Receipt Date: 20110707
  Transmission Date: 20120608
  Serious: No
  Sender: FDA-Public Use
  Company Number: US-PFIZER INC-K201100798

PATIENT
  Age: 63 Year
  Sex: Female
  Weight: 56.236 kg

DRUGS (9)
  1. LOPRESSOR [Concomitant]
     Indication: HYPERTENSION
     Dosage: 100 MG, UNK
     Route: 048
  2. LASIX [Concomitant]
     Dosage: UNK
     Route: 048
  3. CATAPRES [Concomitant]
     Indication: HYPERTENSION
     Dosage: 0.3 MG, UNK
     Route: 048
  4. PLENDIL [Concomitant]
     Indication: HYPERTENSION
     Dosage: 10 MG, UNK
     Route: 048
  5. FLECTOR [Suspect]
     Indication: ARTHRALGIA
     Dosage: 1 PATCH, Q12H
     Route: 061
     Dates: start: 20110301, end: 20110707
  6. LORTAB [Concomitant]
     Indication: ARTHRALGIA
     Dosage: UNK
     Route: 048
  7. OXYCONTIN [Concomitant]
     Indication: ARTHRALGIA
     Dosage: UNK
     Route: 048
  8. DIOVAN [Concomitant]
     Indication: HYPERTENSION
     Dosage: 320 MG, UNK
     Route: 048
  9. POTASSIUM [Concomitant]
     Dosage: 20 MEQ, UNK
     Route: 048

REACTIONS (9)
  - DEPRESSION [None]
  - ANAEMIA [None]
  - HYPERSOMNIA [None]
  - VOMITING [None]
  - DECREASED APPETITE [None]
  - NAUSEA [None]
  - FATIGUE [None]
  - HEADACHE [None]
  - DIZZINESS [None]
